FAERS Safety Report 8799021 (Version 1)
Quarter: 2012Q4

REPORT INFORMATION
  Report Type: 
  Country: IT (occurrence: IT)
  Receive Date: 20120920
  Receipt Date: 20120920
  Transmission Date: 20130627
  Serious: Yes (Hospitalization, Other)
  Sender: FDA-Public Use
  Company Number: PHHY2012IT080641

PATIENT
  Age: 47 Year
  Sex: Female

DRUGS (5)
  1. KETOPROFEN [Suspect]
     Dosage: 200 mg
     Route: 048
     Dates: start: 20120618, end: 20120618
  2. SEROQUEL [Suspect]
     Dosage: 25 mg, UNK
     Route: 048
     Dates: start: 20120618, end: 20120618
  3. SEREUPIN [Suspect]
     Dosage: 20 mg, UNK
     Route: 048
     Dates: start: 20120618, end: 20120618
  4. SPASMEX [Suspect]
     Dosage: 80 mg, UNK
     Route: 048
     Dates: start: 20120618, end: 20120618
  5. RISPERDAL [Suspect]
     Dosage: 3 ml, UNK
     Dates: start: 20120618, end: 20120618

REACTIONS (2)
  - Self injurious behaviour [Unknown]
  - Drug abuse [Unknown]
